FAERS Safety Report 7105663-8 (Version None)
Quarter: 2010Q4

REPORT INFORMATION
  Report Type: 
  Country: None (occurrence: None)
  Receive Date: 20101116
  Receipt Date: 20101108
  Transmission Date: 20110411
  Serious: Yes (Hospitalization, Other)
  Sender: FDA-Public Use
  Company Number: US-BAYER-201014088NA

PATIENT
  Age: 18 Year
  Sex: Female
  Weight: 88 kg

DRUGS (5)
  1. OCELLA [Suspect]
     Indication: ORAL CONTRACEPTION
     Route: 048
     Dates: start: 20090501, end: 20091001
  2. OCELLA [Suspect]
     Route: 048
     Dates: start: 20090501, end: 20091001
  3. OCELLA [Suspect]
     Route: 048
     Dates: start: 20090501, end: 20091001
  4. OCELLA [Suspect]
  5. DICLOFENAC SODIUM [Concomitant]

REACTIONS (10)
  - ABDOMINAL PAIN [None]
  - BACK PAIN [None]
  - BILIARY DYSKINESIA [None]
  - BLOOD PRESSURE INCREASED [None]
  - DIARRHOEA [None]
  - FLANK PAIN [None]
  - HEART RATE INCREASED [None]
  - NAUSEA [None]
  - PAIN IN EXTREMITY [None]
  - PYREXIA [None]
